FAERS Safety Report 5322632-9 (Version None)
Quarter: 2007Q2

REPORT INFORMATION
  Report Type: 
  Country: None (occurrence: None)
  Receive Date: 20070511
  Receipt Date: 20070508
  Transmission Date: 20071010
  Serious: Yes (Death, Life-Threatening, Hospitalization, Disabling)
  Sender: FDA-Public Use
  Company Number: US-JNJFOC-20070501617

PATIENT
  Age: 54 Year
  Sex: Male

DRUGS (7)
  1. PREZISTA [Suspect]
     Indication: HIV INFECTION
     Route: 065
  2. RITONAVIR [Suspect]
     Indication: HIV INFECTION
     Route: 065
  3. TRUVADA [Suspect]
     Indication: HIV INFECTION
     Route: 065
  4. ENFUVIRTIDE [Suspect]
     Indication: HIV INFECTION
     Route: 065
  5. EPOETIN ALFA [Concomitant]
     Route: 065
  6. OXYCODONE HCL [Concomitant]
     Route: 065
  7. BACTRIM DS [Concomitant]
     Route: 065

REACTIONS (3)
  - ESCHERICHIA SEPSIS [None]
  - PANCYTOPENIA [None]
  - RECTAL HAEMORRHAGE [None]
